FAERS Safety Report 12614889 (Version 3)
Quarter: 2017Q3

REPORT INFORMATION
  Report Type: Report from Study
  Country: TW (occurrence: TW)
  Receive Date: 20160802
  Receipt Date: 20170905
  Transmission Date: 20171127
  Serious: Yes (Hospitalization)
  Sender: FDA-Public Use
  Company Number: TW-EISAI MEDICAL RESEARCH-EC-2016-018869

PATIENT
  Age: 24 Year
  Sex: Female
  Weight: 66 kg

DRUGS (16)
  1. SULFAMETHOXAZOLE [Concomitant]
     Active Substance: SULFAMETHOXAZOLE
  2. PYRIDOXINE [Concomitant]
     Active Substance: PYRIDOXINE
  3. FYCOMPA [Suspect]
     Active Substance: PERAMPANEL
     Indication: EPILEPSY
     Route: 048
     Dates: start: 20160628, end: 20160711
  4. SODIUM VALPROATE [Concomitant]
     Active Substance: VALPROATE SODIUM
  5. LEVETIRACETAM. [Concomitant]
     Active Substance: LEVETIRACETAM
  6. DIAZEPAM. [Concomitant]
     Active Substance: DIAZEPAM
  7. ESTAZOLAM. [Concomitant]
     Active Substance: ESTAZOLAM
  8. ACETYLCYSTEINE. [Concomitant]
     Active Substance: ACETYLCYSTEINE
  9. TETRACYCLINE [Concomitant]
     Active Substance: TETRACYCLINE
  10. FYCOMPA [Suspect]
     Active Substance: PERAMPANEL
     Route: 048
     Dates: start: 20160712, end: 20160723
  11. CLOBAZAM [Concomitant]
     Active Substance: CLOBAZAM
  12. PIRACETAM [Concomitant]
     Active Substance: PIRACETAM
  13. DEPAKINE CHRONO [Concomitant]
     Active Substance: VALPROATE SODIUM
  14. LORAZEPAM. [Concomitant]
     Active Substance: LORAZEPAM
  15. TOPIRAMATE. [Concomitant]
     Active Substance: TOPIRAMATE
  16. PREGABALIN. [Concomitant]
     Active Substance: PREGABALIN

REACTIONS (5)
  - Aggression [Recovered/Resolved]
  - Eyelid injury [Recovered/Resolved]
  - Agitation [Recovered/Resolved]
  - Corneal erosion [Recovered/Resolved]
  - Productive cough [Recovered/Resolved]

NARRATIVE: CASE EVENT DATE: 20160724
